FAERS Safety Report 10029199 (Version 1)
Quarter: 2014Q1

REPORT INFORMATION
  Report Type: Spontaneous
  Country: IL (occurrence: IL)
  Receive Date: 20140321
  Receipt Date: 20140321
  Transmission Date: 20141002
  Serious: Yes (Life-Threatening)
  Sender: FDA-Public Use
  Company Number: PHHY2014IL029942

PATIENT
  Age: 21 Year
  Sex: Female

DRUGS (7)
  1. METHOTREXATE [Suspect]
     Dosage: 100 MG, UNK
     Route: 042
  2. LEUCOVORIN CALCIUM [Suspect]
     Dosage: 30 MG, Q6H
     Route: 042
  3. LEUCOVORIN CALCIUM [Suspect]
     Dosage: 30 MG, Q6H
     Route: 048
  4. TRAMADEX [Suspect]
  5. DIPYRONE [Suspect]
  6. ANTIBIOTICS [Suspect]
  7. CORTICOSTEROIDS [Suspect]

REACTIONS (14)
  - Toxicity to various agents [Recovering/Resolving]
  - Rash maculo-papular [Recovering/Resolving]
  - C-reactive protein increased [Recovering/Resolving]
  - Skin exfoliation [Recovering/Resolving]
  - Trismus [Recovering/Resolving]
  - Oral candidiasis [Recovering/Resolving]
  - Pyrexia [Recovering/Resolving]
  - Oral pain [Recovering/Resolving]
  - Oropharyngeal pain [Recovering/Resolving]
  - Pruritus [Recovering/Resolving]
  - Mucosal inflammation [Recovering/Resolving]
  - Neutropenia [Recovering/Resolving]
  - Thrombocytopenia [Recovering/Resolving]
  - Maternal exposure during pregnancy [Unknown]
